FAERS Safety Report 17350550 (Version 1)
Quarter: 2020Q1

REPORT INFORMATION
  Report Type: Report from Study
  Country: US (occurrence: US)
  Receive Date: 20200130
  Receipt Date: 20200130
  Transmission Date: 20200409
  Serious: Yes (Other)
  Sender: FDA-Public Use
  Company Number: US-EMD SERONO-9091029

PATIENT
  Sex: Female

DRUGS (1)
  1. REBIF [Suspect]
     Active Substance: INTERFERON BETA-1A
     Indication: PRODUCT USED FOR UNKNOWN INDICATION
     Route: 058
     Dates: start: 20130709

REACTIONS (5)
  - Skin discolouration [Unknown]
  - Petit mal epilepsy [Unknown]
  - Cholecystectomy [Unknown]
  - Tooth fracture [Unknown]
  - Vitamin D decreased [Unknown]
